FAERS Safety Report 7626911-1 (Version None)
Quarter: 2011Q3

REPORT INFORMATION
  Report Type: 
  Country: None (occurrence: None)
  Receive Date: 20110721
  Receipt Date: 20110713
  Transmission Date: 20111222
  Serious: Yes (Other)
  Sender: FDA-Public Use
  Company Number: US-BAYER-2011-007249

PATIENT
  Age: 18 Year
  Sex: Female
  Weight: 74.83 kg

DRUGS (8)
  1. KAPIDEX [Concomitant]
     Indication: GASTROOESOPHAGEAL REFLUX DISEASE
     Dosage: 60 MG, QD
     Route: 048
     Dates: start: 20091009
  2. VICODIN [Concomitant]
  3. DICYCLOMINE [Concomitant]
     Indication: ABDOMINAL PAIN
     Dosage: UNK
  4. NEXIUM [Concomitant]
     Indication: PRODUCT USED FOR UNKNOWN INDICATION
     Dosage: 40 MG, QD
     Route: 048
     Dates: start: 20091002
  5. YAZ [Suspect]
     Indication: ACNE
     Dosage: UNK
     Route: 048
     Dates: start: 20090801, end: 20091201
  6. HYDROCODONE BITARTRATE AND ACETAMINOPHEN [Concomitant]
     Indication: PAIN MANAGEMENT
     Dosage: UNK
     Dates: start: 20091207
  7. YAZ [Suspect]
     Indication: MENSTRUATION IRREGULAR
  8. FLU VACCINATION [Concomitant]
     Indication: PRODUCT USED FOR UNKNOWN INDICATION
     Dosage: UNK
     Dates: start: 20091002

REACTIONS (5)
  - GALLBLADDER DISORDER [None]
  - DIARRHOEA [None]
  - ABDOMINAL PAIN [None]
  - CHOLECYSTITIS [None]
  - NAUSEA [None]
